FAERS Safety Report 7333141-X (Version None)
Quarter: 2011Q1

REPORT INFORMATION
  Report Type: 
  Country: None (occurrence: None)
  Receive Date: 20110304
  Receipt Date: 20091214
  Transmission Date: 20110831
  Serious: Yes (Hospitalization, Other)
  Sender: FDA-Public Use
  Company Number: US-PFIZER INC-2009276402

PATIENT
  Sex: Female
  Weight: 72 kg

DRUGS (30)
  1. DILANTIN [Suspect]
     Dosage: 200 MG, 2X/DAY
     Route: 042
     Dates: start: 20071014
  2. MULTI-VITAMINS [Concomitant]
  3. DILANTIN [Suspect]
     Dosage: 200 MG, 2X/DAY
     Dates: start: 20071001, end: 20071001
  4. HYDRALAZINE [Concomitant]
     Indication: BLOOD PRESSURE SYSTOLIC
  5. VALIUM [Concomitant]
     Indication: ANXIETY
     Dosage: 5 MG, AS NEEDED
  6. TIGAN [Concomitant]
     Indication: NAUSEA
     Dosage: 200 MG, UNK
     Route: 030
  7. SEROQUEL [Concomitant]
     Indication: AGITATION
     Dosage: 25 MG, 3X/DAY
     Route: 048
  8. ENALAPRIL [Concomitant]
  9. DILANTIN [Suspect]
     Indication: GRAND MAL CONVULSION
     Dosage: 200 MG, 2X/DAY
     Route: 048
     Dates: start: 20070901, end: 20071030
  10. DILANTIN [Suspect]
     Dosage: 300 MG, 1X/DAY
     Route: 048
     Dates: start: 20071001, end: 20071001
  11. LABETALOL [Concomitant]
     Indication: BLOOD PRESSURE SYSTOLIC
  12. TOPAMAX [Concomitant]
     Indication: ANXIETY
     Dosage: 100 MG, 1X/DAY
  13. FLUCONAZOLE [Concomitant]
     Dosage: 1000 MG, UNK
     Route: 048
  14. ROCEPHIN [Concomitant]
     Dosage: 1 G, UNK
  15. DILANTIN [Suspect]
     Dosage: 150 MG, 2X/DAY
     Route: 042
     Dates: end: 20071001
  16. FENTANYL [Concomitant]
     Indication: PAIN
  17. HEPARIN [Concomitant]
     Dosage: 5000 UNITS
     Route: 058
  18. NEURONTIN [Concomitant]
     Dosage: 300 MG, 2X/DAY
     Route: 048
  19. PREMARIN [Concomitant]
  20. ALLEGRA D 24 HOUR [Concomitant]
     Indication: HYPERSENSITIVITY
     Dosage: UNK
  21. DEXAMETHASONE [Concomitant]
     Dosage: 2 MG, 2X/DAY
  22. ONDANSETRON [Concomitant]
  23. RANITIDINE [Concomitant]
     Indication: DYSPEPSIA
     Dosage: 150 MG, 1X/DAY
  24. PEPCID [Concomitant]
     Dosage: 20 MG, UNK
  25. CALAN [Concomitant]
  26. LIDOCAINE [Concomitant]
  27. METOPROLOL [Concomitant]
  28. VIVELLE-DOT [Concomitant]
  29. DILANTIN-125 [Suspect]
     Indication: GRAND MAL CONVULSION
     Dosage: 150 MG, 2X/DAY
     Route: 048
     Dates: start: 20071001, end: 20071001
  30. DOCUSATE [Concomitant]
     Indication: CONSTIPATION
     Dosage: 100 MG, UNK

REACTIONS (1)
  - STEVENS-JOHNSON SYNDROME [None]
